FAERS Safety Report 19693268 (Version 2)
Quarter: 2021Q3

REPORT INFORMATION
  Report Type: Spontaneous
  Country: FI (occurrence: FI)
  Receive Date: 20210813
  Receipt Date: 20210902
  Transmission Date: 20211014
  Serious: Yes (Hospitalization, Other)
  Sender: FDA-Public Use
  Company Number: FI-ORION CORPORATION ORION PHARMA-TREX2021-0046

PATIENT
  Age: 52 Year
  Sex: Female

DRUGS (5)
  1. TREXAN [METHOTREXATE] [Suspect]
     Active Substance: METHOTREXATE
     Indication: RHEUMATIC DISORDER
     Dosage: STRENGTH 10MG
     Route: 065
     Dates: start: 20181114
  2. TREXAN [METHOTREXATE] [Suspect]
     Active Substance: METHOTREXATE
     Dosage: STRENGTH 10MG
     Route: 065
     Dates: start: 20181121
  3. OXIKLORIN [Suspect]
     Active Substance: HYDROXYCHLOROQUINE SULFATE
     Indication: PRODUCT USED FOR UNKNOWN INDICATION
     Route: 065
     Dates: start: 20181212, end: 20210430
  4. PREDNISOLON [PREDNISOLONE] [Suspect]
     Active Substance: PREDNISOLONE
     Indication: PRODUCT USED FOR UNKNOWN INDICATION
     Route: 065
     Dates: start: 20181212
  5. FOLIC ACID. [Suspect]
     Active Substance: FOLIC ACID
     Indication: PRODUCT USED FOR UNKNOWN INDICATION
     Route: 065

REACTIONS (4)
  - Renal infarct [Recovered/Resolved]
  - Kidney infection [Recovered/Resolved]
  - Urinary tract infection [Unknown]
  - Cataract [Unknown]

NARRATIVE: CASE EVENT DATE: 2018
